FAERS Safety Report 8707898 (Version 3)
Quarter: 2012Q4

REPORT INFORMATION
  Report Type: Spontaneous
  Country: US (occurrence: None)
  Receive Date: 20120713
  Receipt Date: 20120912
  Transmission Date: 20130627
  Serious: Yes (Death, Hospitalization)
  Sender: FDA-Public Use
  Company Number: 2012PROUSA01607

PATIENT
  Age: 72 Year
  Sex: Male
  Weight: 88.9 kg

DRUGS (16)
  1. PROVENGE [Suspect]
     Indication: PROSTATE CANCER METASTATIC
     Route: 042
     Dates: start: 20120615, end: 20120615
  2. AMBIEN [Concomitant]
  3. AZOPT [Concomitant]
  4. CIPRO (CIPROFLOXACIN LACTATE) [Concomitant]
  5. GLIPIZIDE [Concomitant]
  6. LASIX [Concomitant]
  7. LOVENOX [Concomitant]
  8. MAGNESIUM (MAGNESIUM) [Concomitant]
  9. OMEPRAZOLE [Concomitant]
  10. OXYCONTIN [Concomitant]
  11. POTASSIUM CHLORIDE [Concomitant]
  12. SIMETHICONE (SIMETICONE) [Concomitant]
  13. SIMVASTATIN [Concomitant]
  14. STRATTERA [Concomitant]
  15. VICODIN [Concomitant]
  16. XALATAN [Concomitant]

REACTIONS (5)
  - Renal failure acute [None]
  - Prostate cancer metastatic [None]
  - Malignant neoplasm progression [None]
  - Obstructive uropathy [None]
  - Nephropathy toxic [None]
